FAERS Safety Report 18625258 (Version 2)
Quarter: 2021Q1

REPORT INFORMATION
  Report Type: Report from Study
  Country: JP (occurrence: JP)
  Receive Date: 20201217
  Receipt Date: 20210326
  Transmission Date: 20210419
  Serious: No
  Sender: FDA-Public Use
  Company Number: JP-JNJFOC-20201125361

PATIENT

DRUGS (3)
  1. STELARA [Suspect]
     Active Substance: USTEKINUMAB
     Indication: CROHN^S DISEASE
     Dosage: DOSE UNKNOWN
     Route: 042
  2. 5?AMINOSALICYLIC ACID [Concomitant]
     Active Substance: MESALAMINE
  3. BUDESONIDE. [Concomitant]
     Active Substance: BUDESONIDE

REACTIONS (9)
  - Drug ineffective [Unknown]
  - Administration site pain [Unknown]
  - Malaise [Unknown]
  - Administration site pruritus [Unknown]
  - Abdominal pain [Unknown]
  - Rash [Unknown]
  - Arthralgia [Unknown]
  - Administration site erythema [Unknown]
  - Nausea [Unknown]
